FAERS Safety Report 5619244-6 (Version None)
Quarter: 2008Q1

REPORT INFORMATION
  Report Type: 
  Country: None (occurrence: None)
  Receive Date: 20080205
  Receipt Date: 20071220
  Transmission Date: 20080703
  Serious: Yes (Disabling)
  Sender: FDA-Public Use
  Company Number: 2007JP005409

PATIENT
  Age: 57 Year
  Sex: Female

DRUGS (7)
  1. PROGRAF [Suspect]
     Indication: RHEUMATOID ARTHRITIS
     Dosage: 1.5 MG, ORAL
     Route: 048
     Dates: start: 20071105
  2. GASTER FORMULATION UNKNOWN [Concomitant]
  3. STARSIS (NATEGLINIDE) FORMULATION UNKNOWN [Concomitant]
  4. BUFFERIN (MAGNESIUM CARBONATE) FORMULATION UNKNOWN [Concomitant]
  5. PREDNISOLONE [Concomitant]
  6. MAGNESIUM OXIDE (MAGNESIUM OXIDE) FORMULATION UNKNOWN [Concomitant]
  7. NSAID'S FORMULATION UNKNOWN [Concomitant]

REACTIONS (2)
  - DRUG ERUPTION [None]
  - NEUROPATHY PERIPHERAL [None]
